FAERS Safety Report 6579095-5 (Version None)
Quarter: 2010Q1

REPORT INFORMATION
  Report Type: 
  Country: None (occurrence: None)
  Receive Date: 20100212
  Receipt Date: 20100203
  Transmission Date: 20100710
  Serious: Yes (Other)
  Sender: FDA-Public Use
  Company Number: US-JNJFOC-20100202202

PATIENT
  Sex: Male

DRUGS (7)
  1. REMICADE [Suspect]
     Indication: RHEUMATOID ARTHRITIS
     Route: 042
  2. VYTORIN [Concomitant]
  3. METHOTREXATE [Concomitant]
     Indication: RHEUMATOID ARTHRITIS
  4. ALLEGRA [Concomitant]
  5. LODINE [Concomitant]
  6. PRILOSEC [Concomitant]
  7. FOLIC ACID [Concomitant]

REACTIONS (7)
  - COUGH [None]
  - FEELING COLD [None]
  - HODGKIN'S DISEASE [None]
  - HYPERHIDROSIS [None]
  - INFUSION RELATED REACTION [None]
  - PYREXIA [None]
  - TREMOR [None]
